FAERS Safety Report 4357438-0 (Version None)
Quarter: 2004Q2

REPORT INFORMATION
  Report Type: 
  Country: None (occurrence: None)
  Receive Date: 20040510
  Receipt Date: 20040428
  Transmission Date: 20050107
  Serious: Yes (Other)
  Sender: FDA-Public Use
  Company Number: BR-JNJFOC-20040500321

PATIENT
  Age: 34 Year
  Sex: Female

DRUGS (2)
  1. ORTHO EVRA [Suspect]
     Indication: ACNE
     Dosage: 1 DOSE (S), 3 IN 4 WEEKS, TRANSDERMAL
     Route: 062
  2. ORTHO EVRA [Suspect]
     Indication: MENSTRUAL DISORDER
     Dosage: 1 DOSE (S), 3 IN 4 WEEKS, TRANSDERMAL
     Route: 062

REACTIONS (1)
  - AUTOIMMUNE DISORDER [None]
